FAERS Safety Report 14823108 (Version 1)
Quarter: 2018Q2

REPORT INFORMATION
  Report Type: Report from Study
  Country: US (occurrence: US)
  Receive Date: 20180427
  Receipt Date: 20180427
  Transmission Date: 20180711
  Serious: Yes (Other)
  Sender: FDA-Public Use
  Company Number: US-GILEAD-2018-0335809

PATIENT
  Age: 70 Year
  Sex: Male

DRUGS (1)
  1. AZTREONAM LYSINE [Suspect]
     Active Substance: AZTREONAM LYSINE
     Indication: CYSTIC FIBROSIS
     Dosage: 75 MG, UNK
     Route: 055
     Dates: start: 20170601

REACTIONS (5)
  - Drug ineffective [Unknown]
  - Nephropathy [Unknown]
  - Pollakiuria [Not Recovered/Not Resolved]
  - Cough [Unknown]
  - Osteoporosis [Unknown]
